FAERS Safety Report 4550009-2 (Version None)
Quarter: 2005Q1

REPORT INFORMATION
  Report Type: 
  Country: None (occurrence: None)
  Receive Date: 20050111
  Receipt Date: 20050111
  Transmission Date: 20050727
  Serious: Yes (Hospitalization)
  Sender: FDA-Public Use
  Company Number: None

PATIENT
  Age: 52 Year
  Sex: Male
  Weight: 64.5 kg

DRUGS (2)
  1. PEGINTERFERON ALPLA 2 B [Suspect]
     Indication: HEPATITIS C VIRUS
     Dosage: 96 MCG SQ WEEKLY
     Route: 058
     Dates: start: 20041029, end: 20041124
  2. RIBAVIRIN [Suspect]
     Dosage: 200 MG Q AM ; 300 MG Q PM

REACTIONS (4)
  - CONDITION AGGRAVATED [None]
  - DEHYDRATION [None]
  - DYSGEUSIA [None]
  - HEPATITIS [None]
